FAERS Safety Report 5087053-5 (Version None)
Quarter: 2006Q3

REPORT INFORMATION
  Report Type: 
  Country: None (occurrence: None)
  Receive Date: 20060821
  Receipt Date: 20060809
  Transmission Date: 20061208
  Serious: Yes (Other)
  Sender: FDA-Public Use
  Company Number: 2006097754

PATIENT
  Age: 79 Year
  Sex: Female

DRUGS (1)
  1. HALCION [Suspect]
     Indication: VAGINAL PAIN
     Dosage: ORAL
     Route: 048

REACTIONS (1)
  - DRUG PRESCRIBING ERROR [None]
